FAERS Safety Report 13667292 (Version 2)
Quarter: 2017Q3

REPORT INFORMATION
  Report Type: Report from Study
  Country: US (occurrence: US)
  Receive Date: 20170619
  Receipt Date: 20170728
  Transmission Date: 20171127
  Serious: Yes (Other)
  Sender: FDA-Public Use
  Company Number: US-BRISTOL-MYERS SQUIBB COMPANY-BMS-2017-053232

PATIENT
  Sex: Female
  Weight: 70.3 kg

DRUGS (2)
  1. APIXABAN [Suspect]
     Active Substance: APIXABAN
     Indication: CEREBROVASCULAR ACCIDENT PROPHYLAXIS
     Dosage: UNK, BID
     Route: 048
     Dates: start: 201704
  2. VESICARE [Suspect]
     Active Substance: SOLIFENACIN SUCCINATE
     Indication: PRODUCT USED FOR UNKNOWN INDICATION
     Route: 065

REACTIONS (9)
  - Asthenia [Unknown]
  - Feeling abnormal [Unknown]
  - Constipation [Unknown]
  - Weight fluctuation [Unknown]
  - Rectal haemorrhage [Recovered/Resolved]
  - Dyspnoea [Recovering/Resolving]
  - Dizziness [Unknown]
  - Blood pressure abnormal [Unknown]
  - Gait disturbance [Unknown]
